FAERS Safety Report 7681310-1 (Version None)
Quarter: 2011Q3

REPORT INFORMATION
  Report Type: 
  Country: None (occurrence: None)
  Receive Date: 20110812
  Receipt Date: 20110517
  Transmission Date: 20111222
  Serious: Yes (Other)
  Sender: FDA-Public Use
  Company Number: PHHY2011BE42085

PATIENT
  Sex: Male

DRUGS (1)
  1. AFINITOR [Suspect]
     Indication: PANCREATIC NEUROENDOCRINE TUMOUR

REACTIONS (4)
  - BLOOD AMYLASE INCREASED [None]
  - TUMOUR NECROSIS [None]
  - PANCREATITIS ACUTE [None]
  - ABDOMINAL PAIN [None]
